FAERS Safety Report 9537065 (Version 2)
Quarter: 2013Q4

REPORT INFORMATION
  Report Type: Spontaneous
  Country: US (occurrence: US)
  Receive Date: 20130919
  Receipt Date: 20131002
  Transmission Date: 20140711
  Serious: No
  Sender: FDA-Public Use
  Company Number: US-PFIZER INC-2013268989

PATIENT
  Age: 71 Year
  Sex: Female
  Weight: 63.04 kg

DRUGS (1)
  1. LYRICA [Suspect]
     Indication: NEURALGIA
     Dosage: 75 MG, 2X/DAY
     Route: 048
     Dates: start: 20130912

REACTIONS (7)
  - Off label use [Unknown]
  - Impaired driving ability [Not Recovered/Not Resolved]
  - Bradyphrenia [Not Recovered/Not Resolved]
  - Feeling abnormal [Not Recovered/Not Resolved]
  - Drug tolerance [Unknown]
  - Therapeutic response unexpected [Unknown]
  - Drug effect increased [Unknown]
